FAERS Safety Report 14841211 (Version 6)
Quarter: 2019Q1

REPORT INFORMATION
  Report Type: Report from Study
  Country: FR (occurrence: FR)
  Receive Date: 20180503
  Receipt Date: 20190330
  Transmission Date: 20190417
  Serious: Yes (Death, Life-Threatening, Hospitalization, Other)
  Sender: FDA-Public Use
  Company Number: FR-ACCORD-066428

PATIENT
  Age: 40 Year
  Sex: Male
  Weight: 78 kg

DRUGS (8)
  1. BENDAMUSTINE/BENDAMUSTINE HYDROCHLORIDE [Suspect]
     Active Substance: BENDAMUSTINE HYDROCHLORIDE
     Indication: MYCOSIS FUNGOIDES
     Dosage: 178 MG, BID?712 MILLIGRAM DAILY
     Route: 042
     Dates: start: 20160927, end: 20161018
  2. DEXERYL [Concomitant]
     Route: 065
  3. PARACETAMOL [Concomitant]
     Active Substance: ACETAMINOPHEN
     Dosage: UNK UNK, UNKNOWN FREQ.
     Route: 065
     Dates: start: 20160927
  4. RAMIPRIL. [Concomitant]
     Active Substance: RAMIPRIL
     Indication: PRODUCT USED FOR UNKNOWN INDICATION
     Route: 065
  5. DERMOVAL /00008501/ [Concomitant]
     Active Substance: CLOBETASOL PROPIONATE
     Route: 065
  6. ADCETRIS [Suspect]
     Active Substance: BRENTUXIMAB VEDOTIN
     Indication: MYCOSIS FUNGOIDES
     Route: 042
     Dates: start: 20161018, end: 20170324
  7. ZOPHREN [Concomitant]
     Active Substance: ONDANSETRON
     Route: 065
     Dates: start: 20161123
  8. CETIRIZINE [Concomitant]
     Active Substance: CETIRIZINE HYDROCHLORIDE
     Indication: PREMEDICATION
     Dosage: UNK UNK, UNKNOWN FREQ.
     Route: 065
     Dates: start: 20160927

REACTIONS (17)
  - Nausea [Recovered/Resolved]
  - Device related sepsis [Fatal]
  - Leukopenia [Recovered/Resolved]
  - Anaphylactic shock [Recovered/Resolved]
  - Mycosis fungoides [Fatal]
  - Thrombocytopenia [Recovered/Resolved]
  - Hyperthermia [Recovered/Resolved]
  - Dyspnoea [Fatal]
  - Staphylococcal bacteraemia [Recovered/Resolved]
  - Hyperlactacidaemia [Fatal]
  - Disease progression [None]
  - Diarrhoea [Recovered/Resolved]
  - Acute kidney injury [Recovered/Resolved]
  - Rash [Fatal]
  - Neutropenia [Recovered/Resolved]
  - Abdominal pain [Recovered/Resolved]
  - Hypotension [Recovered/Resolved]

NARRATIVE: CASE EVENT DATE: 201610
